FAERS Safety Report 21343237 (Version 1)
Quarter: 2022Q3

REPORT INFORMATION
  Report Type: Spontaneous
  Country: US (occurrence: US)
  Receive Date: 20220916
  Receipt Date: 20220916
  Transmission Date: 20221027
  Serious: No
  Sender: FDA-Public Use
  Company Number: US-CURIUM-2022000444

PATIENT
  Sex: Male

DRUGS (1)
  1. ULTRA-TECHNEKOW V4 [Suspect]
     Active Substance: TECHNETIUM TC-99M SODIUM PERTECHNETATE
     Indication: Product used for unknown indication
     Route: 050

REACTIONS (3)
  - Product leakage [Recovered/Resolved]
  - Product use issue [Recovered/Resolved]
  - Occupational exposure to radiation [Recovered/Resolved]
